FAERS Safety Report 8003715-1 (Version None)
Quarter: 2011Q4

REPORT INFORMATION
  Report Type: 
  Country: None (occurrence: None)
  Receive Date: 20111222
  Receipt Date: 20111221
  Transmission Date: 20120403
  Serious: Yes (Death)
  Sender: FDA-Public Use
  Company Number: US-GLAXOSMITHKLINE-A0958943A

PATIENT
  Age: 74 Year
  Sex: Male

DRUGS (9)
  1. ZOLOFT [Concomitant]
  2. BLOOD PRESSURE MEDICATION [Concomitant]
  3. PLAVIX [Concomitant]
  4. ADVAIR DISKUS 100/50 [Suspect]
     Indication: CHRONIC OBSTRUCTIVE PULMONARY DISEASE
     Dosage: 1PUFF PER DAY
     Route: 055
  5. LIPITOR [Concomitant]
  6. SPIRIVA [Concomitant]
  7. THYROID MEDICATION [Concomitant]
  8. LASIX [Concomitant]
  9. MUCINEX [Concomitant]

REACTIONS (2)
  - DEATH [None]
  - PNEUMONIA [None]
